FAERS Safety Report 10202135 (Version 1)
Quarter: 2014Q2

REPORT INFORMATION
  Report Type: Spontaneous
  Country: US (occurrence: US)
  Receive Date: 20140528
  Receipt Date: 20140528
  Transmission Date: 20141212
  Serious: Yes (Other)
  Sender: FDA-Public Use
  Company Number: US-VIIV HEALTHCARE LIMITED-A1074646A

PATIENT
  Age: 42 Year
  Sex: Male

DRUGS (1)
  1. COMBIVIR [Suspect]
     Indication: PRODUCT USED FOR UNKNOWN INDICATION
     Route: 065

REACTIONS (3)
  - Disability [Unknown]
  - Malaise [Unknown]
  - General physical health deterioration [Unknown]
